FAERS Safety Report 10176110 (Version 1)
Quarter: 2014Q2

REPORT INFORMATION
  Report Type: Spontaneous
  Country: US (occurrence: None)
  Receive Date: 20140416
  Receipt Date: 20140416
  Transmission Date: 20141212
  Serious: Yes (Hospitalization)
  Sender: FDA-Public Use
  Company Number: 163-POMAL-14020463

PATIENT
  Age: 55 Year
  Sex: Male
  Weight: 133 kg

DRUGS (8)
  1. POMALYST [Suspect]
     Indication: PLASMA CELL MYELOMA
     Dosage: 21 IN 21 D
     Route: 048
     Dates: start: 20131115
  2. ZOMETA (ZOLEDRONIC ACID) (INJECTION) [Concomitant]
  3. SIMVASTATIN (SIMVASTATIN) (TABLETS) [Concomitant]
  4. ACYCLOVIR (ACICLOVIR) (TABLETS) [Concomitant]
  5. DILTIAZEM HCL (DILTIAZEM HYDROCHLORIDE) (CAPSULES) [Concomitant]
  6. BACTRIM (BACTRIM) (TABLETS) [Concomitant]
  7. FENOFIBRATE (FENOFIBRATE) (TABLETS) [Concomitant]
  8. XARELTO (RIVAROXABAN) (TABLETS) [Concomitant]

REACTIONS (2)
  - Pneumonia [None]
  - Nasopharyngitis [None]
